FAERS Safety Report 25586443 (Version 1)
Quarter: 2025Q3

REPORT INFORMATION
  Report Type: Spontaneous
  Country: US (occurrence: None)
  Receive Date: 20250719
  Receipt Date: 20250719
  Transmission Date: 20251020
  Serious: Yes (Life-Threatening)
  Sender: FDA-CTU
  Company Number: None

PATIENT
  Age: 43 Year
  Sex: Female
  Weight: 87.75 kg

DRUGS (2)
  1. ZEPBOUND [Suspect]
     Active Substance: TIRZEPATIDE
     Indication: Weight decreased
     Dates: start: 20250712, end: 20250712
  2. Beta blocker propranolol [Concomitant]

REACTIONS (6)
  - Dyspnoea [None]
  - Hypertension [None]
  - Pain in extremity [None]
  - Pain in jaw [None]
  - Musculoskeletal discomfort [None]
  - Heart rate increased [None]

NARRATIVE: CASE EVENT DATE: 20250713
